FAERS Safety Report 9022453 (Version 1)
Quarter: 2013Q1

REPORT INFORMATION
  Report Type: Spontaneous
  Country: SE (occurrence: SE)
  Receive Date: 20130118
  Receipt Date: 20130118
  Transmission Date: 20140127
  Serious: Yes (Hospitalization)
  Sender: FDA-Public Use
  Company Number: SE-BAYER-2013-005502

PATIENT
  Age: 45 Year
  Sex: Male

DRUGS (10)
  1. NEXAVAR [Suspect]
     Indication: RENAL CANCER
     Dosage: UNK MG, UNK
     Dates: start: 201202, end: 20121118
  2. OXYCONTIN [Concomitant]
  3. PRIMPERAN [Concomitant]
     Route: 048
  4. OMEPRAZOL [Concomitant]
  5. VENLAFAXINE [Concomitant]
  6. ATACAND PLUS [Concomitant]
  7. JANUVIA [Concomitant]
  8. PROPAVAN [Concomitant]
  9. MINDIAB [Concomitant]
  10. PREDNISOLON [Concomitant]

REACTIONS (1)
  - Lung disorder [Not Recovered/Not Resolved]
